FAERS Safety Report 24748561 (Version 2)
Quarter: 2025Q1

REPORT INFORMATION
  Report Type: Report from Study
  Country: CA (occurrence: CA)
  Receive Date: 20241218
  Receipt Date: 20250210
  Transmission Date: 20250409
  Serious: Yes (Other)
  Sender: NOVARTIS
  Company Number: CA-SANDOZ-SDZ2023CA070068

PATIENT
  Age: 69 Year
  Sex: Female

DRUGS (4)
  1. FINGOLIMOD [Suspect]
     Active Substance: FINGOLIMOD
     Indication: Relapsing-remitting multiple sclerosis
     Route: 048
     Dates: start: 20191212
  2. FINGOLIMOD [Suspect]
     Active Substance: FINGOLIMOD
     Route: 048
  3. FINGOLIMOD [Suspect]
     Active Substance: FINGOLIMOD
     Dosage: 0.5 MG, QD
     Route: 048
  4. FINGOLIMOD [Suspect]
     Active Substance: FINGOLIMOD
     Route: 048

REACTIONS (2)
  - Expanded disability status scale score increased [Unknown]
  - Off label use [Unknown]
